FAERS Safety Report 8743221 (Version 3)
Quarter: 2016Q2

REPORT INFORMATION
  Report Type: Spontaneous
  Country: US (occurrence: US)
  Receive Date: 20120824
  Receipt Date: 20160418
  Transmission Date: 20160815
  Serious: Yes (Congenital Anomaly, Other)
  Sender: FDA-Public Use
  Company Number: US-GLAXOSMITHKLINE-A0990793A

PATIENT
  Sex: Male

DRUGS (2)
  1. PRENATAL VITAMIN [Concomitant]
     Active Substance: VITAMINS
  2. PAXIL CR [Suspect]
     Active Substance: PAROXETINE HYDROCHLORIDE
     Indication: PRODUCT USED FOR UNKNOWN INDICATION
     Dosage: 12.5 MG, 1D
     Route: 064
     Dates: start: 20030616

REACTIONS (7)
  - Mitral valve incompetence [Unknown]
  - Foetal exposure during pregnancy [Unknown]
  - Aortic valve disease [Unknown]
  - Heart disease congenital [Unknown]
  - Ventricular hypertrophy [Unknown]
  - Cryptorchism [Unknown]
  - Hydrocele [Unknown]
